FAERS Safety Report 5071709-4 (Version None)
Quarter: 2006Q3

REPORT INFORMATION
  Report Type: 
  Country: None (occurrence: None)
  Receive Date: 20060804
  Receipt Date: 20060616
  Transmission Date: 20061208
  Serious: Yes (Hospitalization, Other)
  Sender: FDA-Public Use
  Company Number: PHRM2006FR01853

PATIENT
  Age: 70 Year
  Sex: Female

DRUGS (3)
  1. ZOMETA [Suspect]
     Indication: METASTASES TO BONE
     Dosage: UNK, UNK
     Route: 042
     Dates: start: 20030401, end: 20060101
  2. FEMARA [Suspect]
     Indication: BREAST CANCER
     Dosage: UNK, UNK
     Route: 048
     Dates: start: 20030701, end: 20060501
  3. DI-ANTALVIC [Concomitant]
     Indication: BONE PAIN
     Dosage: 4 CAPSULES/DAY MAXIMAL

REACTIONS (15)
  - ABSCESS DRAINAGE [None]
  - ASPARTATE AMINOTRANSFERASE INCREASED [None]
  - CULTURE URINE POSITIVE [None]
  - DENTAL CARE [None]
  - HAEMOPHILUS INFECTION [None]
  - INFLAMMATION [None]
  - LYMPHADENOPATHY [None]
  - METASTASES TO LYMPH NODES [None]
  - OSTEITIS [None]
  - OSTEONECROSIS [None]
  - PAIN IN JAW [None]
  - PYREXIA [None]
  - STREPTOCOCCAL ABSCESS [None]
  - TOOTH ABSCESS [None]
  - WEIGHT DECREASED [None]
